FAERS Safety Report 8804999 (Version 2)
Quarter: 2012Q4

REPORT INFORMATION
  Report Type: Spontaneous
  Country: CA (occurrence: None)
  Receive Date: 20120917
  Receipt Date: 20120921
  Transmission Date: 20130627
  Serious: Yes (Death, Hospitalization, Other)
  Sender: FDA-Public Use
  Company Number: 2012-4080

PATIENT
  Age: 65 Year
  Sex: Male

DRUGS (1)
  1. SOMATULINE DEPOT [Suspect]
     Indication: NEUROENDOCRINE TUMOUR
     Dosage: 1 in 28 D
     Dates: start: 20090202, end: 201208

REACTIONS (7)
  - Adverse event [None]
  - Upper limb fracture [None]
  - Metastases to bone marrow [None]
  - Fall [None]
  - Asthenia [None]
  - Activities of daily living impaired [None]
  - Platelet count abnormal [None]
